FAERS Safety Report 12491303 (Version 1)
Quarter: 2016Q2

REPORT INFORMATION
  Report Type: Spontaneous
  Country: US (occurrence: US)
  Receive Date: 20160623
  Receipt Date: 20160623
  Transmission Date: 20160815
  Serious: No
  Sender: FDA-Public Use
  Company Number: US-GLENMARK PHARMACEUTICALS INC, USA.-2016GMK022796

PATIENT

DRUGS (5)
  1. FLUOCINONIDE. [Concomitant]
     Active Substance: FLUOCINONIDE
     Indication: CARDIAC DISORDER
     Dosage: UNK, BID
     Route: 048
  2. VORICONAZOLE TABLETS [Suspect]
     Active Substance: VORICONAZOLE
     Dosage: SUBSEQUENT DAYS TOOK 2 TABLETS IN THE AM AND 1 TABLET IN THE EVENING
     Route: 048
     Dates: start: 20160414, end: 20160419
  3. VORICONAZOLE TABLETS [Suspect]
     Active Substance: VORICONAZOLE
     Indication: BRONCHOPULMONARY ASPERGILLOSIS
     Dosage: FIRST DAY TOOK 2 TABLETS IN THE AM AND 2 TABLETS IN THE EVENING
     Route: 048
     Dates: start: 20160414, end: 20160419
  4. PROAIR HFA [Concomitant]
     Active Substance: ALBUTEROL SULFATE
     Indication: LUNG DISORDER
     Dosage: UNK
     Route: 048
  5. VALSARTAN HCTZ [Concomitant]
     Active Substance: HYDROCHLOROTHIAZIDE\VALSARTAN
     Indication: BLOOD PRESSURE MEASUREMENT
     Dosage: 1 DF, UNK
     Route: 048

REACTIONS (9)
  - Eye irritation [Recovered/Resolved]
  - Abdominal discomfort [Recovered/Resolved]
  - Vision blurred [Recovered/Resolved]
  - Eye disorder [Recovered/Resolved]
  - Dizziness [Recovered/Resolved]
  - Malaise [Recovered/Resolved]
  - Decreased appetite [Recovered/Resolved]
  - Gait disturbance [Recovered/Resolved]
  - Dyspepsia [None]

NARRATIVE: CASE EVENT DATE: 20160415
